FAERS Safety Report 8106029-4 (Version None)
Quarter: 2012Q1

REPORT INFORMATION
  Report Type: 
  Country: None (occurrence: None)
  Receive Date: 20120202
  Receipt Date: 20120123
  Transmission Date: 20120608
  Serious: No
  Sender: FDA-Public Use
  Company Number: US-BIOGENIDEC-2011BI021494

PATIENT
  Sex: Female

DRUGS (1)
  1. AVONEX [Suspect]
     Indication: MULTIPLE SCLEROSIS
     Route: 030
     Dates: start: 20010622

REACTIONS (4)
  - MEMORY IMPAIRMENT [None]
  - COGNITIVE DISORDER [None]
  - MULTIPLE SCLEROSIS [None]
  - EMOTIONAL DISTRESS [None]
